FAERS Safety Report 6337771-3 (Version None)
Quarter: 2009Q3

REPORT INFORMATION
  Report Type: 
  Country: None (occurrence: None)
  Receive Date: 20090902
  Receipt Date: 20090828
  Transmission Date: 20100115
  Serious: Yes (Other)
  Sender: FDA-Public Use
  Company Number: FI-WYE-G04282109

PATIENT
  Age: 47 Year
  Sex: Female

DRUGS (9)
  1. EFFEXOR [Suspect]
     Indication: PAIN
     Route: 048
     Dates: start: 20020701, end: 20090501
  2. LYRICA [Concomitant]
     Dosage: UNSPECIFIED
  3. NEXIUM [Concomitant]
     Dosage: UNSPECIFIED
  4. PERPHENAZINE [Concomitant]
     Dosage: UNSPECIFIED
     Dates: start: 20090401, end: 20090101
  5. METHOTREXATE [Concomitant]
     Indication: RHEUMATOID ARTHRITIS
     Dosage: UNSPECIFIED
  6. RISPERDAL [Concomitant]
     Dosage: UNSPECIFIED
  7. BACLOFEN [Concomitant]
     Dosage: UNSPECIFIED
  8. CORTISONE [Concomitant]
     Dosage: UNSPECIFIED
  9. SULFASALAZINE [Concomitant]
     Indication: RHEUMATOID ARTHRITIS
     Dosage: UNSPECIFIED

REACTIONS (4)
  - EAR NEOPLASM [None]
  - HALLUCINATION, AUDITORY [None]
  - PSYCHOTIC BEHAVIOUR [None]
  - TINNITUS [None]
